FAERS Safety Report 22950301 (Version 5)
Quarter: 2024Q1

REPORT INFORMATION
  Report Type: Spontaneous
  Country: KR (occurrence: KR)
  Receive Date: 20230915
  Receipt Date: 20240326
  Transmission Date: 20240410
  Serious: Yes (Other)
  Sender: FDA-Public Use
  Company Number: KR-PFIZER INC-PV202300086419

PATIENT
  Age: 59 Year
  Sex: Male

DRUGS (4)
  1. IBRANCE [Suspect]
     Active Substance: PALBOCICLIB
     Indication: Lung neoplasm malignant
     Dosage: 1 CAP 1X DAILY FOR 21 D, TO BE TAKEN AFTER BREAKFAST OR WITH BREAKFAST; 3 WKS ON AND 1 WK OFF
     Route: 048
  2. IBRANCE [Suspect]
     Active Substance: PALBOCICLIB
     Dosage: 1 CAP 1X DAILY FOR 21 D, TO BE TAKEN AFTER BREAKFAST OR WITH BREAKFAST; 3 WKS ON AND 2 WK S OFF
  3. IBRANCE [Suspect]
     Active Substance: PALBOCICLIB
     Dosage: 1 CAP 1X DAILY FOR 21 D, TO BE TAKEN AFTER BREAKFAST OR WITH BREAKFAST; 3 WKS ON AND 1 WK OFF
     Route: 048
  4. IBRANCE [Suspect]
     Active Substance: PALBOCICLIB
     Dosage: 1 CAP 1X DAILY FOR 21 D, TO BE TAKEN AFTER BREAKFAST OR WITH BREAKFAST; 3 WKS ON AND 2 WK S OFF
     Route: 048

REACTIONS (6)
  - Second primary malignancy [Unknown]
  - Malignant neoplasm of thymus [Unknown]
  - Off label use [Unknown]
  - Off label use [Unknown]
  - Product use issue [Unknown]
  - Intercepted product prescribing error [Unknown]

NARRATIVE: CASE EVENT DATE: 20240318
